FAERS Safety Report 19238626 (Version 1)
Quarter: 2021Q2

REPORT INFORMATION
  Report Type: Spontaneous
  Country: CN (occurrence: CN)
  Receive Date: 20210510
  Receipt Date: 20210510
  Transmission Date: 20210717
  Serious: Yes (Other)
  Sender: FDA-Public Use
  Company Number: CN-BAXTER-2021BAX009957

PATIENT
  Age: 44 Year
  Sex: Female
  Weight: 65 kg

DRUGS (8)
  1. 0.9% SODIUM CHLORIDE INJECTION [Suspect]
     Active Substance: SODIUM CHLORIDE
     Dosage: NS 250 ML + CYCLOPHOSPHAMIDE 0.4 G
     Route: 041
     Dates: start: 20210402, end: 20210405
  2. 5% GLUCOSE  INJECTION [Suspect]
     Active Substance: DEXTROSE
     Dosage: GS 100 ML + PIRARUBICIN HYDROCHLORIDE 20 MG
     Route: 041
     Dates: start: 20210406, end: 20210408
  3. 5% GLUCOSE  INJECTION [Suspect]
     Active Substance: DEXTROSE
     Indication: MEDICATION DILUTION
     Dosage: GS + PIRARUBICIN HYDROCHLORIDE
     Route: 041
  4. ENDOXAN [Suspect]
     Active Substance: CYCLOPHOSPHAMIDE
     Dosage: CYCLOPHOSPHAMIDE 0.4 G + NS 250 ML
     Route: 041
     Dates: start: 20210402, end: 20210405
  5. ENDOXAN [Suspect]
     Active Substance: CYCLOPHOSPHAMIDE
     Indication: T-CELL LYMPHOMA
     Dosage: CYCLOPHOSPHAMIDE + NS
     Route: 041
  6. 0.9% SODIUM CHLORIDE INJECTION [Suspect]
     Active Substance: SODIUM CHLORIDE
     Indication: MEDICATION DILUTION
     Dosage: NS + CYCLOPHOSPHAMIDE
     Route: 041
  7. PIRARUBICIN HYDROCHLORIDE [Suspect]
     Active Substance: PIRARUBICIN HYDROCHLORIDE
     Indication: T-CELL LYMPHOMA
     Dosage: PIRARUBICIN HYDROCHLORIDE + GS
     Route: 041
  8. PIRARUBICIN HYDROCHLORIDE [Suspect]
     Active Substance: PIRARUBICIN HYDROCHLORIDE
     Dosage: PIRARUBICIN HYDROCHLORIDE 20 MG + GS 100 ML
     Route: 041
     Dates: start: 20210406, end: 20210408

REACTIONS (1)
  - Myelosuppression [Recovering/Resolving]

NARRATIVE: CASE EVENT DATE: 20210410
